FAERS Safety Report 13532519 (Version 1)
Quarter: 2017Q2

REPORT INFORMATION
  Report Type: Spontaneous
  Country: US (occurrence: US)
  Receive Date: 20170510
  Receipt Date: 20170510
  Transmission Date: 20170830
  Serious: Yes (Other)
  Sender: FDA-Public Use
  Company Number: US-GLAXOSMITHKLINE-US2016199380

PATIENT
  Age: 66 Year
  Sex: Male

DRUGS (9)
  1. TRIMETHOPRIM 180MG, SULFAMETHOXAZOLE 800 MG [Suspect]
     Active Substance: SULFAMETHOXAZOLE\TRIMETHOPRIM
     Indication: URINARY TRACT INFECTION
     Dosage: TWICE DAILY
     Dates: start: 201304
  2. ABACIN [Suspect]
     Active Substance: SULFAMETHOXAZOLE\TRIMETHOPRIM
     Indication: PROPHYLAXIS
     Dosage: DAILY (1.9 MG/KG/DAY)
  3. ACICLOVIR [Suspect]
     Active Substance: ACYCLOVIR
     Indication: B-CELL LYMPHOMA
  4. RITUXIMAB [Suspect]
     Active Substance: RITUXIMAB
     Indication: B-CELL LYMPHOMA
     Dosage: 4 CYCLES
     Dates: start: 201302
  5. VINCRISTINE [Suspect]
     Active Substance: VINCRISTINE
     Indication: B-CELL LYMPHOMA
     Dosage: 4 CYCLES
     Dates: start: 201302
  6. SULFAMETHOXAZOLE 800MG, TRIMETHOPRIM 160MG - TABLET [Suspect]
     Active Substance: SULFAMETHOXAZOLE\TRIMETHOPRIM
     Indication: PNEUMOCYSTIS JIROVECII PNEUMONIA
     Dosage: 2 TABS BY MOUTH EVERY 6 HOURS (15.6 MG/KG/DAY OF TRIMETHOPRIM)
     Route: 048
  7. HYDROXYDAUNORUBICIN [Suspect]
     Active Substance: DOXORUBICIN
     Indication: B-CELL LYMPHOMA
     Dosage: 4 CYCLES
     Dates: start: 201302
  8. PREDNISOLONE. [Suspect]
     Active Substance: PREDNISOLONE
     Indication: B-CELL LYMPHOMA
     Dosage: 4 CYCLES
     Dates: start: 201302
  9. CYCLOPHOSPHAMIDE. [Suspect]
     Active Substance: CYCLOPHOSPHAMIDE
     Indication: B-CELL LYMPHOMA
     Dosage: 4 CYCLES
     Dates: start: 201302

REACTIONS (5)
  - Asterixis [Recovered/Resolved]
  - Pneumocystis jirovecii pneumonia [Unknown]
  - Myoclonus [Recovered/Resolved]
  - Thrombocytopenia [Recovered/Resolved]
  - Postural tremor [Recovered/Resolved]
